FAERS Safety Report 4724937-9 (Version None)
Quarter: 2005Q3

REPORT INFORMATION
  Report Type: 
  Country: None (occurrence: None)
  Receive Date: 20050726
  Receipt Date: 20050725
  Transmission Date: 20060218
  Serious: Yes (Death, Hospitalization)
  Sender: FDA-Public Use
  Company Number: US-SANOFI-SYNTHELABO-F01200501326

PATIENT
  Age: 69 Year
  Sex: Male

DRUGS (4)
  1. OXALIPLATIN [Suspect]
     Indication: OESOPHAGEAL CARCINOMA
     Route: 042
     Dates: start: 20030224
  2. OXALIPLATIN [Suspect]
     Route: 042
     Dates: start: 20050605, end: 20050605
  3. CAPECITABINE [Suspect]
     Dosage: 1000 MG/M2 BID PO INTERMITTENT THERAPY ON DAYS 1-14 EVERY 21 DAYS
     Route: 048
     Dates: start: 20030224
  4. CAPECITABINE [Suspect]
     Dosage: 1000 MG/M2 BID PO INTERMITTENT THERAPY ON DAYS 1-14 EVERY 21 DAYS
     Route: 048
     Dates: end: 20030619

REACTIONS (19)
  - ACUTE RESPIRATORY DISTRESS SYNDROME [None]
  - ANOREXIA [None]
  - BLOOD CREATININE INCREASED [None]
  - DEHYDRATION [None]
  - DEPRESSED LEVEL OF CONSCIOUSNESS [None]
  - DIARRHOEA [None]
  - DIZZINESS [None]
  - DYSPNOEA [None]
  - FATIGUE [None]
  - HAEMOGLOBIN DECREASED [None]
  - HYPERKALAEMIA [None]
  - HYPERNATRAEMIA [None]
  - HYPERURICAEMIA [None]
  - HYPOTENSION [None]
  - NAUSEA [None]
  - PHARYNGITIS [None]
  - PLATELET DISORDER [None]
  - STOMATITIS [None]
  - WEIGHT DECREASED [None]
